FAERS Safety Report 6238909-9 (Version None)
Quarter: 2009Q2

REPORT INFORMATION
  Report Type: 
  Country: None (occurrence: None)
  Receive Date: 20090617
  Receipt Date: 20090617
  Transmission Date: 20091009
  Serious: Yes (Hospitalization)
  Sender: FDA-Public Use
  Company Number: None

PATIENT
  Age: 56 Year
  Sex: Male
  Weight: 89.8122 kg

DRUGS (1)
  1. HEPARIN SODIUM INJECTION [Suspect]
     Indication: ANGIOGRAM
     Dosage: ONE TIME
     Dates: start: 20020915, end: 20020915

REACTIONS (9)
  - CORONARY ARTERY OCCLUSION [None]
  - FEELING ABNORMAL [None]
  - HYPOTENSION [None]
  - IMMEDIATE POST-INJECTION REACTION [None]
  - LOSS OF CONSCIOUSNESS [None]
  - MALAISE [None]
  - TREMOR [None]
  - UNEVALUABLE EVENT [None]
  - VISUAL IMPAIRMENT [None]
